FAERS Safety Report 16692796 (Version 1)
Quarter: 2019Q4

REPORT INFORMATION
  Report Type: Spontaneous
  Country: US (occurrence: US)
  Receive Date: 20190809
  Receipt Date: 20190809
  Transmission Date: 20200122
  Serious: Yes (Hospitalization)
  Sender: FDA-Public Use
  Company Number: None

PATIENT
  Age: 67 Year
  Sex: Male

DRUGS (15)
  1. RANITIDINE. [Concomitant]
     Active Substance: RANITIDINE
     Dates: start: 20180815
  2. MONTELUKAST [Concomitant]
     Active Substance: MONTELUKAST SODIUM
     Dates: start: 20190204
  3. MUPIROCIN. [Concomitant]
     Active Substance: MUPIROCIN
     Dates: start: 20190724
  4. ALPRAZOLAM. [Concomitant]
     Active Substance: ALPRAZOLAM
     Dates: start: 20190729
  5. PANTOPRAZOLE [Concomitant]
     Active Substance: PANTOPRAZOLE
     Dates: start: 20190729
  6. SUCRALFATE. [Concomitant]
     Active Substance: SUCRALFATE
     Dates: start: 20190730
  7. METFORMIN [Concomitant]
     Active Substance: METFORMIN HYDROCHLORIDE
     Dates: start: 20181105
  8. REPATHA [Suspect]
     Active Substance: EVOLOCUMAB
     Indication: HYPERCHOLESTEROLAEMIA
     Dosage: ?          OTHER FREQUENCY:EVERY OTHER WEEK;?
     Route: 058
     Dates: start: 20190403
  9. CARVEDILOL. [Concomitant]
     Active Substance: CARVEDILOL
     Dates: start: 20190316
  10. NITROGLYCERIN. [Concomitant]
     Active Substance: NITROGLYCERIN
     Dates: start: 20190712
  11. AMLODIPINE [Concomitant]
     Active Substance: AMLODIPINE BESYLATE
     Dates: start: 20190712
  12. PIOGLITAZONE. [Concomitant]
     Active Substance: PIOGLITAZONE
     Dates: start: 20180815
  13. LISINOPRIL. [Concomitant]
     Active Substance: LISINOPRIL
     Dates: start: 20181206
  14. CLONIDINE. [Concomitant]
     Active Substance: CLONIDINE
     Dates: start: 20190612
  15. MICONAZOLE. [Concomitant]
     Active Substance: MICONAZOLE
     Dates: start: 20190726

REACTIONS (1)
  - Vascular graft [None]

NARRATIVE: CASE EVENT DATE: 20190731
